FAERS Safety Report 20414303 (Version 2)
Quarter: 2022Q1

REPORT INFORMATION
  Report Type: Spontaneous
  Country: RU (occurrence: RU)
  Receive Date: 20220202
  Receipt Date: 20220224
  Transmission Date: 20220423
  Serious: Yes (Other)
  Sender: FDA-Public Use
  Company Number: RU-SUN PHARMACEUTICAL INDUSTRIES LTD-2019R1-230074

PATIENT
  Age: 48 Year
  Sex: Male

DRUGS (3)
  1. DOCETAXEL [Suspect]
     Active Substance: DOCETAXEL
     Indication: Chemotherapy
     Dosage: UNK
     Route: 065
     Dates: start: 201703, end: 201803
  2. BEVACIZUMAB [Suspect]
     Active Substance: BEVACIZUMAB
     Indication: Chemotherapy
     Dosage: UNK
     Route: 065
     Dates: start: 201703, end: 201803
  3. CRIZOTINIB [Suspect]
     Active Substance: CRIZOTINIB
     Indication: Chemotherapy
     Dosage: UNK
     Route: 065
     Dates: start: 201703, end: 201803

REACTIONS (3)
  - Off label use [Unknown]
  - Pneumonia [Unknown]
  - Disease progression [Unknown]
